FAERS Safety Report 4552933-3 (Version None)
Quarter: 2005Q1

REPORT INFORMATION
  Report Type: 
  Country: None (occurrence: None)
  Receive Date: 20050113
  Receipt Date: 20041229
  Transmission Date: 20050727
  Serious: Yes (Other)
  Sender: FDA-Public Use
  Company Number: 2004IM000958

PATIENT
  Age: 53 Year
  Sex: Male

DRUGS (3)
  1. INFERGEN [Suspect]
     Indication: HEPATITIS C
     Dosage: 15 UG; QD; SUBCUTANEOUS
     Route: 058
     Dates: start: 20040908, end: 20041006
  2. RIBAVIRIN [Suspect]
     Indication: HEPATITIS C
     Dosage: 600 MG; BID; ORAL
     Route: 048
     Dates: start: 20040908, end: 20041006
  3. ACIPHEX [Concomitant]

REACTIONS (8)
  - ANAEMIA [None]
  - ARTHRALGIA [None]
  - DILATATION ATRIAL [None]
  - DILATATION VENTRICULAR [None]
  - MYALGIA [None]
  - NAUSEA [None]
  - NEUTROPENIA [None]
  - PULMONARY HYPERTENSION [None]
